FAERS Safety Report 15419472 (Version 1)
Quarter: 2018Q3

REPORT INFORMATION
  Report Type: Spontaneous
  Country: US (occurrence: US)
  Receive Date: 20180924
  Receipt Date: 20180924
  Transmission Date: 20181010
  Serious: Yes (Hospitalization, Other)
  Sender: FDA-Public Use
  Company Number: US-VERTEX PHARMACEUTICALS-2018-006722

PATIENT
  Age: 54 Year
  Sex: Female

DRUGS (24)
  1. AZTREONAM LYSINE [Suspect]
     Active Substance: AZTREONAM LYSINE
     Indication: CYSTIC FIBROSIS
     Dosage: 75 MG, TID 28 DAYS ON AND 28 DAYS OFF
     Route: 055
     Dates: start: 20150420
  2. ADVAIR HFA [Concomitant]
     Active Substance: FLUTICASONE PROPIONATE\SALMETEROL XINAFOATE
  3. QUETIAPINE. [Concomitant]
     Active Substance: QUETIAPINE
  4. TOPAMAX [Concomitant]
     Active Substance: TOPIRAMATE
  5. TRAMADOL. [Concomitant]
     Active Substance: TRAMADOL
  6. VITAMIN D3 [Suspect]
     Active Substance: CHOLECALCIFEROL
     Indication: CYSTIC FIBROSIS
     Dosage: 1 DOSAGE FORM, QD
     Route: 048
     Dates: start: 20150413
  7. FERROUS SULFATE. [Concomitant]
     Active Substance: FERROUS SULFATE
  8. PULMOZYME [Concomitant]
     Active Substance: DORNASE ALFA
  9. SALINE                             /00075401/ [Concomitant]
     Active Substance: SODIUM CHLORIDE
  10. URSODIOL. [Concomitant]
     Active Substance: URSODIOL
  11. KALYDECO [Suspect]
     Active Substance: IVACAFTOR
     Indication: CYSTIC FIBROSIS
     Dosage: 1 DOSAGE FORM, BID
     Route: 048
     Dates: start: 20150702
  12. LORATADINE. [Concomitant]
     Active Substance: LORATADINE
  13. DICLOFENAC [Concomitant]
     Active Substance: DICLOFENAC
  14. ACETYLCYSTEINE SODIUM [Concomitant]
     Active Substance: ACETYLCYSTEINE SODIUM
  15. GUANFACINE. [Concomitant]
     Active Substance: GUANFACINE
  16. MUCINEX [Concomitant]
     Active Substance: GUAIFENESIN
  17. NORCO [Concomitant]
     Active Substance: ACETAMINOPHEN\HYDROCODONE BITARTRATE
  18. PROTONIX                           /00661201/ [Concomitant]
     Active Substance: OMEPRAZOLE
  19. SODIUM CHLORIDE. [Suspect]
     Active Substance: SODIUM CHLORIDE
     Indication: CYSTIC FIBROSIS
     Dosage: 3 MILLILITER, BID
     Route: 055
     Dates: start: 20150408
  20. CALCIUM CITRATE [Suspect]
     Active Substance: CALCIUM CITRATE
     Indication: CYSTIC FIBROSIS
     Dosage: 1 DOSAGE FORM, BID
     Route: 048
     Dates: start: 20160813
  21. AZITHROMYCIN ANHYDROUS. [Concomitant]
     Active Substance: AZITHROMYCIN ANHYDROUS
  22. CLONAZEPAM. [Concomitant]
     Active Substance: CLONAZEPAM
  23. PANCREAZE                          /00150201/ [Concomitant]
  24. ZOLOFT [Concomitant]
     Active Substance: SERTRALINE HYDROCHLORIDE

REACTIONS (1)
  - Cystic fibrosis [Unknown]

NARRATIVE: CASE EVENT DATE: 20180803
